FAERS Safety Report 23441498 (Version 1)
Quarter: 2024Q1

REPORT INFORMATION
  Report Type: Spontaneous
  Country: EG (occurrence: EG)
  Receive Date: 20240125
  Receipt Date: 20240125
  Transmission Date: 20240410
  Serious: Yes (Hospitalization, Other)
  Sender: FDA-Public Use
  Company Number: EG-HIKMA PHARMACEUTICALS-EG-H14001-24-00593

PATIENT
  Age: 56 Year
  Sex: Female
  Weight: 61 kg

DRUGS (4)
  1. GEMCITABINE HYDROCHLORIDE [Suspect]
     Active Substance: GEMCITABINE HYDROCHLORIDE
     Indication: Lung cancer metastatic
     Dosage: 1500 MILLIGRAM, ON DAYS 1, 8 AND 16, CYCLE 1
     Route: 042
     Dates: start: 20231021
  2. GEMCITABINE HYDROCHLORIDE [Suspect]
     Active Substance: GEMCITABINE HYDROCHLORIDE
     Dosage: 1500 MILLIGRAM, ON DAYS 1, 8 AND 16, CYCLE 2
     Route: 042
     Dates: start: 20231118
  3. CISPLATIN [Suspect]
     Active Substance: CISPLATIN
     Indication: Lung cancer metastatic
     Dosage: 105 MILLIGRAM, ON DAY 1, CYCLE 1
     Route: 042
     Dates: start: 20231021
  4. CISPLATIN [Suspect]
     Active Substance: CISPLATIN
     Dosage: 105 MILLIGRAM, ON DAY 1, CYCLE 2
     Route: 042
     Dates: start: 20231118

REACTIONS (3)
  - Thrombocytosis [Recovering/Resolving]
  - Anaemia [Unknown]
  - Thrombocytopenia [Recovering/Resolving]

NARRATIVE: CASE EVENT DATE: 20231118
